FAERS Safety Report 8991830 (Version 3)
Quarter: 2013Q1

REPORT INFORMATION
  Report Type: Spontaneous
  Country: US (occurrence: US)
  Receive Date: 20121231
  Receipt Date: 20130325
  Transmission Date: 20140127
  Serious: Yes (Other)
  Sender: FDA-Public Use
  Company Number: US-ELI_LILLY_AND_COMPANY-US201212006528

PATIENT
  Sex: Female
  Weight: 80.73 kg

DRUGS (14)
  1. BYDUREON [Suspect]
     Indication: TYPE 2 DIABETES MELLITUS
     Dosage: 2 MG, WEEKLY (1/W)
     Route: 058
     Dates: start: 201208
  2. BYETTA [Suspect]
     Indication: TYPE 2 DIABETES MELLITUS
     Dosage: 5 UG, BID
     Route: 058
     Dates: start: 201008, end: 201008
  3. BYETTA [Suspect]
     Dosage: 10 UG, BID
     Route: 058
     Dates: start: 201008, end: 201112
  4. BYETTA [Suspect]
     Dosage: 5 UG, BID
     Route: 058
  5. HYDROCHLOROTHIAZIDE [Concomitant]
     Indication: HYPERTENSION
     Dosage: 25 MG, QD
     Route: 048
  6. ATENOLOL [Concomitant]
     Indication: HYPERTENSION
     Dosage: 25 MG, QD
     Route: 048
  7. GLIMEPIRIDE [Concomitant]
     Indication: TYPE 2 DIABETES MELLITUS
     Dosage: 4 MG, QD
     Route: 048
  8. TRAZODONE [Concomitant]
     Dosage: 150 MG, EACH EVENING
     Route: 048
  9. PROZAC [Concomitant]
     Dosage: 80 MG, EACH EVENING
     Route: 048
  10. BUSPAR [Concomitant]
     Dosage: 15 MG, BID
     Route: 048
  11. ALPRAZOLAM [Concomitant]
     Dosage: .5 MG, BID
     Route: 048
  12. OMEPRAZOLE [Concomitant]
     Dosage: 20 MG, BID
     Route: 048
  13. ESTRADIOL [Concomitant]
     Dosage: 1 MG, QD
     Route: 048
  14. SIMVASTATIN [Concomitant]
     Dosage: 40 MG, BID
     Route: 048

REACTIONS (7)
  - Meningioma benign [Unknown]
  - Diarrhoea [Recovered/Resolved]
  - Road traffic accident [Recovered/Resolved]
  - Hypertension [Recovering/Resolving]
  - Insomnia [Not Recovered/Not Resolved]
  - Weight decreased [Unknown]
  - Constipation [Not Recovered/Not Resolved]
